FAERS Safety Report 16793179 (Version 1)
Quarter: 2019Q3

REPORT INFORMATION
  Report Type: Other
  Country: GB (occurrence: GB)
  Receive Date: 20190911
  Receipt Date: 20190911
  Transmission Date: 20191005
  Serious: Yes (Life-Threatening, Hospitalization, Other)
  Sender: FDA-Public Use
  Company Number: GB-DENTSPLY-2019SCDP000475

PATIENT
  Age: 34 Year
  Sex: Male

DRUGS (1)
  1. LIDOCAINE. [Suspect]
     Active Substance: LIDOCAINE
     Indication: PRODUCT USED FOR UNKNOWN INDICATION
     Dosage: UNK

REACTIONS (6)
  - Epiglottic oedema [Recovered/Resolved]
  - Obstructive airways disorder [Recovered/Resolved]
  - Laryngeal oedema [Recovered/Resolved]
  - Localised oedema [Recovered/Resolved]
  - Unresponsive to stimuli [Recovered/Resolved]
  - Drug hypersensitivity [Recovered/Resolved]
